FAERS Safety Report 21736889 (Version 1)
Quarter: 2022Q4

REPORT INFORMATION
  Report Type: Spontaneous
  Country: US (occurrence: US)
  Receive Date: 20221216
  Receipt Date: 20221216
  Transmission Date: 20230113
  Serious: No
  Sender: FDA-Public Use
  Company Number: US-STRIDES ARCOLAB LIMITED-2022SP002135

PATIENT
  Age: 34 Year
  Sex: Female

DRUGS (3)
  1. VALGANCICLOVIR HYDROCHLORIDE [Suspect]
     Active Substance: VALGANCICLOVIR HYDROCHLORIDE
     Indication: Antiviral prophylaxis
     Dosage: 450 MILLIGRAM PER DAY
     Route: 065
  2. VALGANCICLOVIR HYDROCHLORIDE [Suspect]
     Active Substance: VALGANCICLOVIR HYDROCHLORIDE
     Dosage: 450 MILLIGRAM TWICE A DAY FOR SECONDARY PROPHYLAXIS
     Route: 048
  3. GANCICLOVIR [Concomitant]
     Active Substance: GANCICLOVIR
     Indication: Cytomegalovirus infection
     Dosage: 5 MILLIGRAM/KILOGRAM, EVERY 12 HRS
     Route: 065

REACTIONS (1)
  - Off label use [Unknown]
